FAERS Safety Report 8381919-6 (Version None)
Quarter: 2012Q2

REPORT INFORMATION
  Report Type: 
  Country: None (occurrence: None)
  Receive Date: 20120522
  Receipt Date: 20120522
  Transmission Date: 20120825
  Serious: Yes (Life-Threatening, Hospitalization)
  Sender: FDA-Public Use
  Company Number: None

PATIENT
  Age: 65 Year
  Sex: Female
  Weight: 63.5036 kg

DRUGS (4)
  1. MELOXICAM [Suspect]
     Indication: INFLAMMATION
     Dosage: 7.5 TWICE A DAY PO
     Route: 048
     Dates: start: 20110620, end: 20111109
  2. MELOXICAM [Suspect]
     Indication: ARTHRITIS
     Dosage: 7.5 TWICE A DAY PO
     Route: 048
     Dates: start: 20110620, end: 20111109
  3. MELOXICAM [Suspect]
     Indication: INFLAMMATION
     Dosage: 7.5 TWICE A DAY PO
     Route: 048
     Dates: start: 20111111, end: 20120324
  4. MELOXICAM [Suspect]
     Indication: ARTHRITIS
     Dosage: 7.5 TWICE A DAY PO
     Route: 048
     Dates: start: 20111111, end: 20120324

REACTIONS (1)
  - GASTRIC ULCER PERFORATION [None]
